FAERS Safety Report 11092612 (Version 1)
Quarter: 2015Q2

REPORT INFORMATION
  Report Type: Spontaneous
  Country: FR (occurrence: None)
  Receive Date: 20150504
  Receipt Date: 20150504
  Transmission Date: 20150821
  Serious: Yes (Hospitalization)
  Sender: FDA-Public Use
  Company Number: FR2015GSK056016

PATIENT
  Age: 65 Year
  Sex: Male

DRUGS (15)
  1. KARDEGIC [Concomitant]
     Active Substance: ASPIRIN LYSINE
  2. SYMBICORT (BUDESONIDE + FORMOTEROL FUMARATE) [Concomitant]
  3. ROCEPHINE (CELFTRIAXONE SODIUM) [Concomitant]
  4. SPIRIVA (TIOTROPIUM BROMIDE) [Concomitant]
  5. DIGOXIN (DIGOXIN) UNKNOWN [Suspect]
     Active Substance: DIGOXIN
     Indication: ATRIAL FIBRILLATION
     Dates: start: 201412, end: 20150101
  6. SALBUTAMOL (SALBUTAMOL SULPHATE)??? [Concomitant]
  7. IMOVANE [Concomitant]
     Active Substance: ZOPICLONE
  8. AUGMENTIN [Suspect]
     Active Substance: AMOXICILLIN\CLAVULANATE POTASSIUM
     Indication: BRONCHITIS
     Dates: start: 20141224, end: 20150101
  9. CORTANCYL (PREDNISONE)??? [Concomitant]
  10. CORDARONE [Suspect]
     Active Substance: AMIODARONE HYDROCHLORIDE
     Indication: ATRIAL FIBRILLATION
     Dates: start: 201412, end: 20150101
  11. TEMERIT (NEBIVOLOL) [Concomitant]
  12. DISCOTRINE (NITROGLYCERINE) [Concomitant]
  13. VICTOZA [Concomitant]
     Active Substance: LIRAGLUTIDE
  14. LASILIX (FRUSEMIDE) [Concomitant]
  15. TRIATEC (RAMIPRIL) [Concomitant]
     Active Substance: RAMIPRIL

REACTIONS (2)
  - Anti factor V antibody positive [None]
  - Prothrombin time shortened [None]

NARRATIVE: CASE EVENT DATE: 20141229
